FAERS Safety Report 12544106 (Version 1)
Quarter: 2016Q3

REPORT INFORMATION
  Report Type: Spontaneous
  Country: US (occurrence: US)
  Receive Date: 20160711
  Receipt Date: 20160711
  Transmission Date: 20161109
  Serious: No
  Sender: FDA-Public Use
  Company Number: US-BAYER-2016-121027

PATIENT
  Age: 41 Year
  Sex: Male
  Weight: 79.37 kg

DRUGS (2)
  1. PRILOSEC [Concomitant]
     Active Substance: OMEPRAZOLE MAGNESIUM
  2. CLARITIN [Suspect]
     Active Substance: LORATADINE
     Indication: ALLERGIC SINUSITIS
     Dosage: 1 DF, QD
     Route: 048
     Dates: end: 20160505

REACTIONS (5)
  - Skin disorder [None]
  - Dry skin [None]
  - Product use issue [None]
  - Pruritus [None]
  - Urticaria [None]
